FAERS Safety Report 7990580-1 (Version None)
Quarter: 2011Q4

REPORT INFORMATION
  Report Type: 
  Country: None (occurrence: None)
  Receive Date: 20111219
  Receipt Date: 20110506
  Transmission Date: 20120403
  Serious: No
  Sender: FDA-Public Use
  Company Number: US-ASTRAZENECA-2011SE27917

PATIENT
  Age: 67 Year
  Sex: Female
  Weight: 86 kg

DRUGS (5)
  1. FISH OIL [Concomitant]
     Indication: CHILLS
  2. NEXIUM [Concomitant]
  3. CRESTOR [Suspect]
     Indication: HYPERCHOLESTEROLAEMIA
     Route: 048
     Dates: start: 20101001, end: 20110401
  4. EFFEXOR [Concomitant]
  5. VITAMIN E [Concomitant]

REACTIONS (5)
  - MALAISE [None]
  - NASOPHARYNGITIS [None]
  - ASTHENIA [None]
  - DYSPNOEA [None]
  - FATIGUE [None]
